FAERS Safety Report 12345489 (Version 2)
Quarter: 2016Q2

REPORT INFORMATION
  Report Type: Spontaneous
  Country: PT (occurrence: PT)
  Receive Date: 20160509
  Receipt Date: 20160511
  Transmission Date: 20160815
  Serious: Yes (Other)
  Sender: FDA-Public Use
  Company Number: PT-ROCHE-1752971

PATIENT
  Age: 62 Year

DRUGS (7)
  1. TIOTROPIUM BROMIDE [Concomitant]
     Active Substance: TIOTROPIUM BROMIDE
  2. MONTELUKAST [Concomitant]
     Active Substance: MONTELUKAST SODIUM
  3. EBASTINE [Concomitant]
     Active Substance: EBASTINE
  4. XOLAIR [Suspect]
     Active Substance: OMALIZUMAB
     Dosage: 4/4 WEEKS
     Route: 065
     Dates: start: 201201
  5. BUDESONIDE/FORMOTEROL [Concomitant]
     Active Substance: BUDESONIDE\FORMOTEROL
     Dosage: 320/9 UG
     Route: 065
  6. FLUTICASONE [Concomitant]
     Active Substance: FLUTICASONE\FLUTICASONE PROPIONATE
  7. XOLAIR [Suspect]
     Active Substance: OMALIZUMAB
     Indication: ASTHMA
     Dosage: 2/2 WEEKS
     Route: 065
     Dates: start: 201012

REACTIONS (5)
  - Skin discolouration [Unknown]
  - Bronchial obstruction [Unknown]
  - Blood pressure systolic increased [Unknown]
  - Mucosal discolouration [Unknown]
  - Nasal turbinate hypertrophy [Unknown]
